FAERS Safety Report 20611884 (Version 2)
Quarter: 2023Q1

REPORT INFORMATION
  Report Type: Spontaneous
  Country: GB (occurrence: GB)
  Receive Date: 20220318
  Receipt Date: 20230220
  Transmission Date: 20230418
  Serious: Yes (Death, Hospitalization, Other)
  Sender: FDA-Public Use
  Company Number: GB-MHRA-MED-202203141043364400-U8NWE

PATIENT
  Age: 56 Year
  Sex: Female
  Weight: 54 kg

DRUGS (3)
  1. FONDAPARINUX [Suspect]
     Active Substance: FONDAPARINUX
     Indication: Myocardial infarction
     Dosage: UNK
     Route: 065
     Dates: start: 20210723
  2. TICAGRELOR [Suspect]
     Active Substance: TICAGRELOR
     Indication: Myocardial infarction
     Dosage: UNK
     Route: 065
     Dates: start: 20210723
  3. ASPIRIN [Concomitant]
     Active Substance: ASPIRIN
     Indication: Embolism
     Dosage: UNK
     Route: 065
     Dates: start: 20200712

REACTIONS (6)
  - Retroperitoneal haemorrhage [Fatal]
  - Chest pain [Unknown]
  - Pancreatitis haemorrhagic [Unknown]
  - Multiple organ dysfunction syndrome [Unknown]
  - Hypovolaemia [Unknown]
  - Product monitoring error [Unknown]

NARRATIVE: CASE EVENT DATE: 20210727
